FAERS Safety Report 9803993 (Version 1)
Quarter: 2014Q1

REPORT INFORMATION
  Report Type: Spontaneous
  Country: AU (occurrence: AU)
  Receive Date: 20140108
  Receipt Date: 20140108
  Transmission Date: 20141002
  Serious: Yes (Hospitalization)
  Sender: FDA-Public Use
  Company Number: AU-BAYER-2014-000030

PATIENT
  Age: 20 Year
  Sex: Female

DRUGS (4)
  1. ACETYLSALICYLIC ACID({=100 MG) [Suspect]
     Indication: PROPHYLAXIS
  2. NIFEDIPINE [Suspect]
  3. ENOXAPARIN [Concomitant]
  4. HYDRALAZINE [Concomitant]

REACTIONS (7)
  - Malaise [None]
  - Nausea [None]
  - Blood pressure increased [None]
  - Maternal exposure during pregnancy [None]
  - Off label use [None]
  - Premature labour [None]
  - Off label use [None]
